FAERS Safety Report 5343680-9 (Version None)
Quarter: 2007Q2

REPORT INFORMATION
  Report Type: 
  Country: None (occurrence: None)
  Receive Date: 20070531
  Receipt Date: 20070531
  Transmission Date: 20071010
  Serious: Yes (Hospitalization)
  Sender: FDA-Public Use
  Company Number: None

PATIENT
  Sex: Female
  Weight: 68.0396 kg

DRUGS (3)
  1. ADVIL LIQUI-GELS [Suspect]
     Indication: BACK PAIN
     Dosage: 200MG DAILY
     Dates: end: 20070404
  2. ADVIL LIQUI-GELS [Suspect]
     Indication: INSOMNIA
     Dosage: 200MG DAILY
     Dates: end: 20070404
  3. ADVIL PM [Suspect]
     Indication: PAIN
     Dosage: 200MG DAILY
     Dates: end: 20070404

REACTIONS (1)
  - STEVENS-JOHNSON SYNDROME [None]
